FAERS Safety Report 21278443 (Version 1)
Quarter: 2022Q3

REPORT INFORMATION
  Report Type: Spontaneous
  Country: JP (occurrence: JP)
  Receive Date: 20220831
  Receipt Date: 20220831
  Transmission Date: 20221026
  Serious: Yes (Hospitalization)
  Sender: FDA-Public Use
  Company Number: JP-DSJP-DSJ-2022-131254

PATIENT
  Age: 66 Year
  Sex: Male
  Weight: 50.1 kg

DRUGS (35)
  1. ENHERTU [Suspect]
     Active Substance: FAM-TRASTUZUMAB DERUXTECAN-NXKI
     Indication: Gastric cancer
     Dosage: 380 MG
     Route: 041
     Dates: start: 20220323, end: 20220323
  2. ENHERTU [Suspect]
     Active Substance: FAM-TRASTUZUMAB DERUXTECAN-NXKI
     Dosage: 320 MG
     Route: 041
     Dates: start: 20220419, end: 20220419
  3. ENHERTU [Suspect]
     Active Substance: FAM-TRASTUZUMAB DERUXTECAN-NXKI
     Dosage: 320 MG
     Route: 041
     Dates: start: 20220517, end: 20220517
  4. DOMPERIDONE [Concomitant]
     Active Substance: DOMPERIDONE
     Dosage: 10 MG, TID, BEFORE EACH MEAL
     Route: 065
     Dates: end: 20220519
  5. SPIRONOLACTONE [Concomitant]
     Active Substance: SPIRONOLACTONE
     Dosage: 25 MG, QD, AFTER BREAKFAST
     Route: 065
  6. MAGNESIUM OXIDE [Concomitant]
     Active Substance: MAGNESIUM OXIDE
     Dosage: 330 MG, TID, AFTER EACH MEAL
     Route: 065
     Dates: end: 20220519
  7. POTASSIUM ASPARTATE [Concomitant]
     Active Substance: POTASSIUM ASPARTATE
     Dosage: 300 MG, TID, AFTER EACH MEAL
     Route: 065
  8. TELMISARTAN [Concomitant]
     Active Substance: TELMISARTAN
     Dosage: 40 MG, QD, AFTER BREAKFAST
     Route: 065
  9. NEXIUM [Concomitant]
     Active Substance: ESOMEPRAZOLE MAGNESIUM
     Dosage: 20 MG, QD, AFTER BREAKFAST
     Route: 065
  10. ASPIRIN [Concomitant]
     Active Substance: ASPIRIN
     Dosage: 100 MG, QD, AFTER BREAKFAST
     Route: 065
  11. AMLODIPINE BESYLATE [Concomitant]
     Active Substance: AMLODIPINE BESYLATE
     Dosage: 5 MG, QD, AFTER BREAKFAST
     Route: 065
     Dates: end: 20220519
  12. ROSUVASTATIN CALCIUM [Concomitant]
     Active Substance: ROSUVASTATIN CALCIUM
     Dosage: 2.5 MG, QD, AFTER BREAKFAST
     Route: 065
  13. NICORANDIL [Concomitant]
     Active Substance: NICORANDIL
     Dosage: 5 MG, BID, AFTER BREAKFAST AND AFTER DINNER
     Route: 065
     Dates: end: 20220519
  14. CARVEDILOL [Concomitant]
     Active Substance: CARVEDILOL
     Dosage: 2.5 MG, BID, AFTER BREAKFAST AND AFTER DINNER
     Route: 065
  15. ISOSORBIDE DINITRATE [Concomitant]
     Active Substance: ISOSORBIDE DINITRATE
     Dosage: 1 DF, QD
     Route: 065
     Dates: end: 20220519
  16. LOXOPROFEN SODIUM [Concomitant]
     Active Substance: LOXOPROFEN SODIUM
     Dosage: 60 MG, TID, AFTER EACH MEAL
     Route: 065
     Dates: end: 20220519
  17. ZOLPIDEM TARTRATE [Concomitant]
     Active Substance: ZOLPIDEM TARTRATE
     Dosage: 5 MG, AS NEEDED, AT INSOMNIA
     Route: 065
  18. DIETARY SUPPLEMENT\PROBIOTICS [Concomitant]
     Active Substance: DIETARY SUPPLEMENT\PROBIOTICS
     Dosage: UNK
     Route: 065
     Dates: end: 20220519
  19. CEFCAPENE PIVOXIL HYDROCHLORIDE HYDRATE [Concomitant]
     Active Substance: CEFCAPENE PIVOXIL HYDROCHLORIDE HYDRATE
     Dosage: UNK
     Route: 065
     Dates: end: 20220519
  20. REBAMIPIDE [Concomitant]
     Active Substance: REBAMIPIDE
     Dosage: UNK
     Route: 065
     Dates: end: 20220519
  21. GRANISETRON HYDROCHLORIDE [Concomitant]
     Active Substance: GRANISETRON HYDROCHLORIDE
     Dosage: 3MG/100ML/DAY
     Route: 065
     Dates: start: 20220323
  22. GRANISETRON HYDROCHLORIDE [Concomitant]
     Active Substance: GRANISETRON HYDROCHLORIDE
     Dosage: 3MG/100ML/DAY
     Route: 065
     Dates: start: 20220419
  23. GRANISETRON HYDROCHLORIDE [Concomitant]
     Active Substance: GRANISETRON HYDROCHLORIDE
     Dosage: 3MG/100ML/DAY
     Route: 065
     Dates: start: 20220517
  24. DECADRON [Concomitant]
     Active Substance: DEXAMETHASONE
     Dosage: 6.6 MG/ML/DAY
     Route: 065
     Dates: start: 20220323
  25. DECADRON [Concomitant]
     Active Substance: DEXAMETHASONE
     Dosage: 6.6 MG/ML/DAY
     Route: 065
     Dates: start: 20220419
  26. DECADRON [Concomitant]
     Active Substance: DEXAMETHASONE
     Dosage: 6.6 MG/ML/DAY
     Route: 065
     Dates: start: 20220517
  27. DEXTROSE [Concomitant]
     Active Substance: DEXTROSE
     Dosage: 50 ML/DAY
     Route: 065
     Dates: start: 20220323
  28. DEXTROSE [Concomitant]
     Active Substance: DEXTROSE
     Dosage: 100 ML/DAY
     Route: 065
     Dates: start: 20220323
  29. DEXTROSE [Concomitant]
     Active Substance: DEXTROSE
     Dosage: 50 ML/DAY
     Route: 065
     Dates: start: 20220419
  30. DEXTROSE [Concomitant]
     Active Substance: DEXTROSE
     Dosage: 100 ML/DAY
     Route: 065
     Dates: start: 20220419
  31. DEXTROSE [Concomitant]
     Active Substance: DEXTROSE
     Dosage: 50 ML/DAY
     Route: 065
     Dates: start: 20220517
  32. DEXTROSE [Concomitant]
     Active Substance: DEXTROSE
     Dosage: 100 ML/DAY
     Route: 065
     Dates: start: 20220517
  33. SODIUM CHLORIDE [Concomitant]
     Active Substance: SODIUM CHLORIDE
     Dosage: 20ML/DAY
     Route: 065
     Dates: start: 20220323
  34. SODIUM CHLORIDE [Concomitant]
     Active Substance: SODIUM CHLORIDE
     Dosage: 20ML/DAY
     Route: 065
     Dates: start: 20220419
  35. SODIUM CHLORIDE [Concomitant]
     Active Substance: SODIUM CHLORIDE
     Dosage: 20ML/DAY
     Route: 065
     Dates: start: 20220517

REACTIONS (2)
  - Cardiac failure [Recovering/Resolving]
  - Overdose [Unknown]

NARRATIVE: CASE EVENT DATE: 20220323
